FAERS Safety Report 9047032 (Version 1)
Quarter: 2013Q1

REPORT INFORMATION
  Report Type: Spontaneous
  Country: US (occurrence: None)
  Receive Date: 20130129
  Receipt Date: 20130129
  Transmission Date: 20140127
  Serious: No
  Sender: FDA-Public Use
  Company Number: None

PATIENT
  Age: 23 Year
  Sex: Female
  Weight: 68 kg

DRUGS (1)
  1. BENADRYL [Suspect]
     Route: 042
     Dates: start: 20130104, end: 20130104

REACTIONS (3)
  - Tachycardia [None]
  - Dyskinesia [None]
  - Maternal exposure during delivery [None]
